FAERS Safety Report 21895524 (Version 1)
Quarter: 2023Q1

REPORT INFORMATION
  Report Type: Other
  Country: CA (occurrence: None)
  Receive Date: 20230123
  Receipt Date: 20230123
  Transmission Date: 20230417
  Serious: Yes (Other)
  Sender: FDA-Public Use
  Company Number: CA-ROCHE-3267293

PATIENT
  Sex: Female

DRUGS (14)
  1. ENSPRYNG [Suspect]
     Active Substance: SATRALIZUMAB-MWGE
     Indication: Neuromyelitis optica spectrum disorder
     Dosage: AT WEEKS 0, 2, AND 4 THEN EVERY 4 WEEKS
     Route: 058
     Dates: start: 20220126
  2. ENSPRYNG [Suspect]
     Active Substance: SATRALIZUMAB-MWGE
  3. ENSPRYNG [Suspect]
     Active Substance: SATRALIZUMAB-MWGE
  4. ENSPRYNG [Suspect]
     Active Substance: SATRALIZUMAB-MWGE
  5. ROSUVASTATIN [Concomitant]
     Active Substance: ROSUVASTATIN
  6. TIZANIDINE [Concomitant]
     Active Substance: TIZANIDINE
  7. ESOMEPRAZOLE [Concomitant]
     Active Substance: ESOMEPRAZOLE
  8. IRBESARTAN [Concomitant]
     Active Substance: IRBESARTAN
  9. GABAPENTIN [Concomitant]
     Active Substance: GABAPENTIN
     Dosage: 9 TABLETS DAILY
  10. SPIRONOLACTONE [Concomitant]
     Active Substance: SPIRONOLACTONE
  11. ACLASTA [Concomitant]
     Active Substance: ZOLEDRONIC ACID
  12. PREDNISONE [Concomitant]
     Active Substance: PREDNISONE
  13. MYRBETRIQ [Concomitant]
     Active Substance: MIRABEGRON
  14. FUROSEMIDE [Concomitant]
     Active Substance: FUROSEMIDE

REACTIONS (3)
  - Dental discomfort [Recovered/Resolved]
  - Neuromyelitis optica spectrum disorder [Recovered/Resolved]
  - Abdominal distension [Recovered/Resolved]
